FAERS Safety Report 8778682 (Version 1)
Quarter: 2012Q4

REPORT INFORMATION
  Report Type: 
  Country: US (occurrence: US)
  Receive Date: 20120917
  Receipt Date: 20120917
  Transmission Date: 20130627
  Serious: Yes (Other)
  Sender: FDA-Public Use
  Company Number: US-PFIZER INC-2012221658

PATIENT
  Age: 68 Year
  Sex: Female
  Weight: 105.67 kg

DRUGS (2)
  1. ACCUPRIL [Suspect]
     Indication: HYPERTENSION
     Dosage: 10 mg, 1x/day
     Route: 048
     Dates: start: 200009
  2. ASPIRIN [Concomitant]
     Dosage: UNK

REACTIONS (7)
  - Renal impairment [Unknown]
  - Blood potassium increased [Unknown]
  - Hyperproteinaemia [Unknown]
  - Blood pressure fluctuation [Unknown]
  - Red blood cell count increased [Unknown]
  - Weight decreased [Unknown]
  - Body height decreased [Unknown]
